FAERS Safety Report 24375838 (Version 1)
Quarter: 2024Q3

REPORT INFORMATION
  Report Type: Spontaneous
  Country: US (occurrence: US)
  Receive Date: 20240928
  Receipt Date: 20240928
  Transmission Date: 20241016
  Serious: Yes (Death, Life-Threatening, Hospitalization, Other)
  Sender: AMGEN
  Company Number: US-AMGEN-USASP2024192457

PATIENT
  Age: 48 Year
  Sex: Male

DRUGS (3)
  1. PREDNISONE [Suspect]
     Active Substance: PREDNISONE
     Indication: Immunosuppression
     Dosage: UNK
     Route: 065
  2. MYCOPHENOLIC ACID [Concomitant]
     Active Substance: MYCOPHENOLIC ACID
     Indication: Immunosuppression
     Dosage: UNK
  3. TACROLIMUS [Concomitant]
     Active Substance: TACROLIMUS
     Indication: Immunosuppression
     Dosage: UNK

REACTIONS (16)
  - Death [Fatal]
  - Pneumonia legionella [Unknown]
  - Acute kidney injury [Unknown]
  - Nephritic syndrome [Unknown]
  - Pulmonary alveolar haemorrhage [Unknown]
  - Alpha haemolytic streptococcal infection [Unknown]
  - Septic shock [Unknown]
  - Post infection glomerulonephritis [Unknown]
  - Cryoglobulinaemia [Unknown]
  - Endocarditis [Unknown]
  - Aortic thrombosis [Unknown]
  - Immunodeficiency [Unknown]
  - Multiple organ dysfunction syndrome [Unknown]
  - Hypoxia [Unknown]
  - Haemodynamic instability [Unknown]
  - Petechiae [Unknown]
